FAERS Safety Report 7930554-X (Version None)
Quarter: 2011Q4

REPORT INFORMATION
  Report Type: 
  Country: None (occurrence: None)
  Receive Date: 20111121
  Receipt Date: 20111111
  Transmission Date: 20120403
  Serious: Yes (Disabling, Other)
  Sender: FDA-Public Use
  Company Number: GR-AMGEN-GRCSP2011059208

PATIENT
  Sex: Female

DRUGS (6)
  1. XANAX [Concomitant]
     Dosage: 0.5 MG, QD
  2. LIPITOR [Concomitant]
     Dosage: 10 MG, QOD
  3. ONEALPHA [Concomitant]
  4. LEVOTHYROXINE SODIUM [Concomitant]
     Dosage: UNK UNK, QD
  5. PROLIA [Suspect]
     Indication: OSTEOPOROSIS POSTMENOPAUSAL
     Dosage: UNK
     Dates: start: 20110601
  6. CARVEPEN [Concomitant]
     Dosage: UNK

REACTIONS (3)
  - MENISCUS LESION [None]
  - MACULAR DEGENERATION [None]
  - GOITRE [None]
